FAERS Safety Report 5647654-X (Version None)
Quarter: 2008Q1

REPORT INFORMATION
  Report Type: 
  Country: None (occurrence: None)
  Receive Date: 20080303
  Receipt Date: 20080220
  Transmission Date: 20080703
  Serious: Yes (Hospitalization, Other)
  Sender: FDA-Public Use
  Company Number: JP-PFIZER INC-2007035210

PATIENT
  Age: 33 Year
  Sex: Male

DRUGS (2)
  1. NORVASC [Suspect]
     Dosage: DAILY DOSE:450MG-TEXT:ONLY ONE TIME
     Route: 048
  2. KERLONG [Suspect]
     Dosage: DAILY DOSE:900MG-TEXT:ONLY ONE TIME
     Route: 048

REACTIONS (3)
  - CARDIOGENIC SHOCK [None]
  - INTENTIONAL OVERDOSE [None]
  - SUICIDE ATTEMPT [None]
